FAERS Safety Report 17812104 (Version 2)
Quarter: 2020Q2

REPORT INFORMATION
  Report Type: Spontaneous
  Country: FR (occurrence: FR)
  Receive Date: 20200521
  Receipt Date: 20200608
  Transmission Date: 20200714
  Serious: Yes (Death, Other)
  Sender: FDA-Public Use
  Company Number: FR-PFIZER INC-2020200536

PATIENT
  Age: 14 Day
  Sex: Male

DRUGS (1)
  1. NOREPINEPHRINE BITARTRATE. [Suspect]
     Active Substance: NOREPINEPHRINE BITARTRATE
     Indication: HYPOTENSION
     Dosage: UNK
     Route: 041
     Dates: start: 202004, end: 20200419

REACTIONS (5)
  - Off label use [Recovered/Resolved]
  - Wrong rate [Recovered/Resolved]
  - Product use issue [Recovered/Resolved]
  - Blood lactic acid increased [Recovered/Resolved]
  - Neonatal multi-organ failure [Fatal]

NARRATIVE: CASE EVENT DATE: 202004
